FAERS Safety Report 24379741 (Version 1)
Quarter: 2024Q3

REPORT INFORMATION
  Report Type: Spontaneous
  Country: CN (occurrence: CN)
  Receive Date: 20240930
  Receipt Date: 20240930
  Transmission Date: 20241017
  Serious: Yes (Other)
  Sender: BAYER
  Company Number: CN-BAYER-2024A138853

PATIENT
  Age: 56 Year
  Sex: Male
  Weight: 58 kg

DRUGS (2)
  1. NEXAVAR [Suspect]
     Active Substance: SORAFENIB
     Indication: Hepatocellular carcinoma
     Dosage: 0.4 G, BID
     Route: 048
     Dates: start: 20230816, end: 2023
  2. NEXAVAR [Suspect]
     Active Substance: SORAFENIB
     Indication: Hepatocellular carcinoma
     Dosage: 0.4 G, QD
     Route: 048
     Dates: start: 2023, end: 20231130

REACTIONS (3)
  - Hepatocellular carcinoma [None]
  - Nodular rash [Recovering/Resolving]
  - Erythema [None]

NARRATIVE: CASE EVENT DATE: 20230823
